FAERS Safety Report 9753222 (Version 1)
Quarter: 2013Q4

REPORT INFORMATION
  Report Type: Spontaneous
  Country: US (occurrence: US)
  Receive Date: 20131213
  Receipt Date: 20131213
  Transmission Date: 20140711
  Serious: No
  Sender: FDA-Public Use
  Company Number: US-GILEAD-2010-0027626

PATIENT
  Sex: Female
  Weight: 72.12 kg

DRUGS (11)
  1. LETAIRIS [Suspect]
     Indication: PULMONARY ARTERIAL HYPERTENSION
     Route: 048
     Dates: start: 20080215
  2. XANAX [Concomitant]
  3. ALBUTEROL [Concomitant]
  4. REVATIO [Concomitant]
  5. NEURONTIN [Concomitant]
  6. HYDROCODONE/APAP [Concomitant]
  7. VITAMIN D [Concomitant]
  8. PRILOSEC [Concomitant]
  9. WELLBUTRIN [Concomitant]
  10. ADVAIR [Concomitant]
  11. VENTOLIN [Concomitant]

REACTIONS (3)
  - Diarrhoea [Unknown]
  - Insomnia [Unknown]
  - Erythema [Unknown]
